FAERS Safety Report 23230537 (Version 1)
Quarter: 2023Q4

REPORT INFORMATION
  Report Type: Spontaneous
  Country: IT (occurrence: IT)
  Receive Date: 20231127
  Receipt Date: 20231127
  Transmission Date: 20240109
  Serious: Yes (Hospitalization)
  Sender: FDA-Public Use
  Company Number: None

PATIENT
  Age: 65 Year
  Sex: Female

DRUGS (2)
  1. HALDOL [Suspect]
     Active Substance: HALOPERIDOL
     Indication: Intentional overdose
     Route: 048
     Dates: start: 20231102, end: 20231102
  2. ABILIFY [Suspect]
     Active Substance: ARIPIPRAZOLE
     Indication: Intentional overdose
     Route: 048
     Dates: start: 20231102, end: 20231102

REACTIONS (3)
  - Vomiting [Not Recovered/Not Resolved]
  - Intentional overdose [Not Recovered/Not Resolved]
  - Drug abuse [Unknown]

NARRATIVE: CASE EVENT DATE: 20231102
